FAERS Safety Report 11414664 (Version 1)
Quarter: 2015Q3

REPORT INFORMATION
  Report Type: Spontaneous
  Country: US (occurrence: US)
  Receive Date: 20150825
  Receipt Date: 20150825
  Transmission Date: 20151125
  Serious: No
  Sender: FDA-Public Use
  Company Number: US-AMGEN-USASP2015081684

PATIENT
  Age: 40 Year
  Sex: Male

DRUGS (2)
  1. NEURONTIN [Concomitant]
     Active Substance: GABAPENTIN
     Dosage: UNK
  2. ENBREL [Suspect]
     Active Substance: ETANERCEPT
     Indication: PSORIATIC ARTHROPATHY
     Dosage: 50 MG, QWK
     Route: 058
     Dates: start: 2013

REACTIONS (5)
  - Hypoaesthesia [Unknown]
  - Intervertebral disc protrusion [Unknown]
  - Neck surgery [Unknown]
  - Peripheral swelling [Unknown]
  - Sciatica [Unknown]

NARRATIVE: CASE EVENT DATE: 201311
